FAERS Safety Report 4633526-6 (Version None)
Quarter: 2005Q2

REPORT INFORMATION
  Report Type: 
  Country: None (occurrence: None)
  Receive Date: 20050331
  Receipt Date: 20041030
  Transmission Date: 20051028
  Serious: Yes (Other)
  Sender: FDA-Public Use
  Company Number: 200415279BCC

PATIENT
  Age: 45 Year
  Sex: Female
  Weight: 50.8029 kg

DRUGS (6)
  1. ALEVE (CAPLET) [Suspect]
     Indication: HEADACHE
     Dosage: 220 MG, ONCE, ORAL;  220 MG, ONCE, ORAL
     Route: 048
     Dates: start: 20041001
  2. ALEVE (CAPLET) [Suspect]
     Indication: HEADACHE
     Dosage: 220 MG, ONCE, ORAL;  220 MG, ONCE, ORAL
     Route: 048
     Dates: start: 20041030
  3. CALTRATE [Concomitant]
     Indication: PAIN
  4. SYNTHROID [Concomitant]
  5. ESTROGEN (NOS) [Concomitant]
  6. CENTRUM [Concomitant]

REACTIONS (5)
  - DYSPHAGIA [None]
  - HYPERSENSITIVITY [None]
  - PRURITUS [None]
  - THROAT TIGHTNESS [None]
  - URTICARIA [None]
